FAERS Safety Report 9607481 (Version 4)
Quarter: 2014Q2

REPORT INFORMATION
  Report Type: Spontaneous
  Country: JP (occurrence: JP)
  Receive Date: 20131009
  Receipt Date: 20140418
  Transmission Date: 20141212
  Serious: Yes (Other)
  Sender: FDA-Public Use
  Company Number: JP-JNJFOC-20131003077

PATIENT
  Age: 70 Year
  Sex: Male

DRUGS (6)
  1. DUROTEP MT [Suspect]
     Indication: CANCER PAIN
     Route: 062
     Dates: end: 20130929
  2. DUROTEP MT [Suspect]
     Indication: CANCER PAIN
     Route: 062
     Dates: start: 20131003
  3. DUROTEP MT [Suspect]
     Indication: CANCER PAIN
     Route: 062
     Dates: start: 20130930, end: 20131003
  4. DUROTEP MT [Suspect]
     Indication: CANCER PAIN
     Route: 062
     Dates: start: 201309
  5. OXYCODONE HYDROCHLORIDE HYDRATE [Concomitant]
     Indication: CANCER PAIN
     Route: 048
     Dates: start: 201309
  6. OXYCODONE HYDROCHLORIDE HYDRATE [Concomitant]
     Indication: CANCER PAIN
     Route: 048
     Dates: end: 201309

REACTIONS (2)
  - Angina pectoris [Recovered/Resolved]
  - Dyspnoea [Recovered/Resolved]
